FAERS Safety Report 15695016 (Version 1)
Quarter: 2018Q4

REPORT INFORMATION
  Report Type: Spontaneous
  Country: US (occurrence: US)
  Receive Date: 20181206
  Receipt Date: 20181206
  Transmission Date: 20190205
  Serious: Yes (Other)
  Sender: FDA-Public Use
  Company Number: US-ENDO PHARMACEUTICALS INC-2018-039775

PATIENT
  Sex: Male

DRUGS (2)
  1. XIAFLEX [Suspect]
     Active Substance: COLLAGENASE CLOSTRIDIUM HISTOLYTICUM
     Dosage: 0.58 MG, CYCLE 1 INJECTION 1
     Route: 026
     Dates: start: 20180611
  2. XIAFLEX [Suspect]
     Active Substance: COLLAGENASE CLOSTRIDIUM HISTOLYTICUM
     Indication: PEYRONIE^S DISEASE
     Dosage: 0.58 MG, CYCLE 1 INJECTION 2
     Route: 026
     Dates: start: 20180613, end: 2018

REACTIONS (4)
  - Blood blister [Recovered/Resolved]
  - Skin disorder [Recovered/Resolved]
  - Penile blister [Recovered/Resolved]
  - Penile oedema [Recovered/Resolved]

NARRATIVE: CASE EVENT DATE: 2018
